FAERS Safety Report 18816169 (Version 2)
Quarter: 2021Q1

REPORT INFORMATION
  Report Type: Spontaneous
  Country: US (occurrence: US)
  Receive Date: 20210201
  Receipt Date: 20210205
  Transmission Date: 20210419
  Serious: Yes (Hospitalization, Other)
  Sender: FDA-Public Use
  Company Number: US-PFIZER INC-2021074421

PATIENT
  Age: 61 Year
  Sex: Male

DRUGS (3)
  1. CHLORPROPAMIDE. [Suspect]
     Active Substance: CHLORPROPAMIDE
     Dosage: 750 MG, DAILY
     Dates: start: 19690604
  2. CHLORPROPAMIDE. [Suspect]
     Active Substance: CHLORPROPAMIDE
     Dosage: 500 MG, DAILY
     Dates: start: 19690601
  3. CHLORPROPAMIDE. [Suspect]
     Active Substance: CHLORPROPAMIDE
     Dosage: 250 MG, DAILY
     Dates: start: 19690531

REACTIONS (5)
  - Asthenia [Unknown]
  - Dyspnoea exertional [Unknown]
  - Ocular icterus [Unknown]
  - Chromaturia [Unknown]
  - Autoimmune haemolytic anaemia [Recovering/Resolving]

NARRATIVE: CASE EVENT DATE: 19690613
